FAERS Safety Report 4547185-4 (Version None)
Quarter: 2005Q1

REPORT INFORMATION
  Report Type: 
  Country: None (occurrence: None)
  Receive Date: 20050105
  Receipt Date: 20041228
  Transmission Date: 20050727
  Serious: Yes (Other)
  Sender: FDA-Public Use
  Company Number: 2004120318

PATIENT
  Age: 74 Year
  Sex: Male
  Weight: 83.9154 kg

DRUGS (5)
  1. LIPITOR [Suspect]
     Indication: BLOOD CHOLESTEROL
     Dosage: 80 MG (80 MG, 1 IN 1 D), ORAL
     Route: 048
  2. CLOPIDOGREL BISULFATE [Concomitant]
  3. METOPROLOL TARTRATE [Concomitant]
  4. LISINOPRIL [Concomitant]
  5. ASPIRIN [Concomitant]

REACTIONS (4)
  - BACK PAIN [None]
  - HYPOTRICHOSIS [None]
  - MYALGIA [None]
  - SYNOVIAL CYST [None]
